FAERS Safety Report 5824521-X (Version None)
Quarter: 2008Q3

REPORT INFORMATION
  Report Type: 
  Country: None (occurrence: None)
  Receive Date: 20080728
  Receipt Date: 20080724
  Transmission Date: 20090109
  Serious: Yes (Hospitalization)
  Sender: FDA-Public Use
  Company Number: DE-WYE-G01911208

PATIENT
  Sex: Female

DRUGS (6)
  1. TREVILOR [Suspect]
     Dosage: UNKNOWN
     Route: 048
     Dates: start: 20080723, end: 20080723
  2. TRAZODONE HCL [Suspect]
     Dosage: UNKNOWN
     Route: 048
     Dates: start: 20080723, end: 20080723
  3. OXAZEPAM [Suspect]
     Dosage: UNKNOWN
     Route: 048
     Dates: start: 20080723, end: 20080723
  4. ALCOHOL [Suspect]
     Dosage: A BOTTLE OF SPARKLING WINE
     Route: 048
     Dates: start: 20080723, end: 20080723
  5. DIPIPERON [Suspect]
     Dosage: UNKNOWN
     Route: 048
     Dates: start: 20080723, end: 20080723
  6. MELPERONE HYDROCHLORIDE [Suspect]
     Dosage: UNKNOWN
     Route: 048
     Dates: start: 20080723, end: 20080723

REACTIONS (2)
  - DRUG ABUSE [None]
  - SOMNOLENCE [None]
